FAERS Safety Report 4284567-2 (Version None)
Quarter: 2004Q1

REPORT INFORMATION
  Report Type: 
  Country: None (occurrence: None)
  Receive Date: 20040130
  Receipt Date: 20040120
  Transmission Date: 20041129
  Serious: Yes (Other)
  Sender: FDA-Public Use
  Company Number: 200410582GDDC

PATIENT
  Age: 20 Year
  Sex: Female

DRUGS (2)
  1. FEXOFENADINE (TELFAST) [Suspect]
     Indication: HYPERSENSITIVITY
     Dosage: 120 MG HS PO
     Route: 048
     Dates: start: 20031001, end: 20031201
  2. MULTIVITAMIN [Concomitant]

REACTIONS (3)
  - AGITATION [None]
  - HEART RATE INCREASED [None]
  - PSYCHOTIC DISORDER [None]
